FAERS Safety Report 7365534-9 (Version None)
Quarter: 2011Q1

REPORT INFORMATION
  Report Type: 
  Country: None (occurrence: None)
  Receive Date: 20110322
  Receipt Date: 20110214
  Transmission Date: 20110831
  Serious: Yes (Hospitalization, Other)
  Sender: FDA-Public Use
  Company Number: US-BAYER-201038768NA

PATIENT
  Sex: Female
  Weight: 69 kg

DRUGS (11)
  1. DULCOLAX [Concomitant]
     Indication: CONSTIPATION
  2. MUSCLE RELAXANTS [Concomitant]
     Indication: MUSCLE STRAIN
  3. FLEXERIL [Concomitant]
  4. LAXATIVES [Concomitant]
     Indication: CONSTIPATION
  5. YAZ [Suspect]
     Indication: DYSMENORRHOEA
  6. YAZ [Suspect]
     Indication: CONTRACEPTION
     Dosage: 1 TAB/DAY
     Route: 048
     Dates: start: 20070719, end: 20071125
  7. PROTONIX [Concomitant]
     Dosage: 40 MG, QD
  8. COLACE [Concomitant]
     Dosage: 100 MG, QD
  9. LORTAB [Concomitant]
  10. LEVAQUIN [Concomitant]
  11. RELAFEN [Concomitant]

REACTIONS (2)
  - DEEP VEIN THROMBOSIS [None]
  - PULMONARY EMBOLISM [None]
